FAERS Safety Report 4795166-8 (Version None)
Quarter: 2005Q4

REPORT INFORMATION
  Report Type: 
  Country: None (occurrence: None)
  Receive Date: 20051006
  Receipt Date: 20050923
  Transmission Date: 20060501
  Serious: Yes (Other)
  Sender: FDA-Public Use
  Company Number: HQWYE687827SEP05

PATIENT
  Age: 38 Year
  Sex: Female
  Weight: 52.21 kg

DRUGS (1)
  1. TRIPHASIL-28 [Suspect]
     Indication: CONTRACEPTION
     Dosage: 1 TABLET 1X PER 1 DAY ORAL
     Route: 048
     Dates: start: 19870101

REACTIONS (2)
  - BASEDOW'S DISEASE [None]
  - SYNCOPE [None]
